FAERS Safety Report 9988615 (Version 1)
Quarter: 2014Q1

REPORT INFORMATION
  Report Type: Spontaneous
  Country: AU (occurrence: AU)
  Receive Date: 20140310
  Receipt Date: 20140310
  Transmission Date: 20141002
  Serious: Yes (Death)
  Sender: FDA-Public Use
  Company Number: AU-009507513-1403AUS003131

PATIENT
  Age: 69 Year
  Sex: Male

DRUGS (9)
  1. JANUMET 50 MG/1000 MG [Suspect]
     Dosage: 2 DOSE UNSPEC DAILY
     Route: 048
  2. ATORVASTATIN [Suspect]
     Dosage: 40 MILLIGRAM DAILY
     Route: 048
  3. CLOPIDOGREL [Suspect]
     Dosage: 75 MILLIGRAM DAILY
  4. ESOMEPRAZOLE MAGNESIUM [Suspect]
     Dosage: 40 MILLIGRAM DAILY
  5. GLICLAZIDE [Suspect]
     Dosage: 120 MILLIGRAM DAILY
  6. ACETAMINOPHEN [Suspect]
     Dosage: 1 GRAM AS NECESSARY
  7. PIOGLITAZONE HYDROCHLORIDE [Suspect]
  8. RANITIDINE [Suspect]
     Dosage: 300 MILLIGRAM DAILY
  9. SERTRALINE HYDROCHLORIDE [Suspect]
     Dosage: 25 MILLIGRAM DAILY

REACTIONS (3)
  - Dyspnoea [Fatal]
  - Hypophagia [Fatal]
  - Abdominal pain [Fatal]
